FAERS Safety Report 9184759 (Version 1)
Quarter: 2013Q1

REPORT INFORMATION
  Report Type: Spontaneous
  Country: US (occurrence: US)
  Receive Date: 20130325
  Receipt Date: 20130325
  Transmission Date: 20140127
  Serious: No
  Sender: FDA-Public Use
  Company Number: US-009507513-1303USA011300

PATIENT
  Sex: Male

DRUGS (2)
  1. MIRALAX [Suspect]
     Indication: CONSTIPATION
     Dosage: 17 G, UNKNOWN
     Route: 048
     Dates: start: 201301
  2. MIRALAX [Suspect]
     Dosage: 17 G, UNKNOWN
     Route: 048
     Dates: start: 20130129

REACTIONS (1)
  - Abdominal pain upper [Unknown]
